FAERS Safety Report 8322666-6 (Version None)
Quarter: 2012Q2

REPORT INFORMATION
  Report Type: 
  Country: None (occurrence: None)
  Receive Date: 20120430
  Receipt Date: 20120425
  Transmission Date: 20120825
  Serious: Yes (Hospitalization, Disabling)
  Sender: FDA-Public Use
  Company Number: US-MERCK-1108USA02799

PATIENT
  Age: 53 Year
  Sex: Female
  Weight: 67 kg

DRUGS (2)
  1. FOSAMAX [Suspect]
     Indication: OSTEOPENIA
     Route: 048
     Dates: start: 20040908, end: 20060601
  2. BONIVA [Suspect]
     Route: 048
     Dates: start: 20080101

REACTIONS (22)
  - PALPITATIONS [None]
  - FRACTURE NONUNION [None]
  - FOOT DEFORMITY [None]
  - FALL [None]
  - PAIN [None]
  - STRESS FRACTURE [None]
  - TOOTH FRACTURE [None]
  - OSTEOARTHRITIS [None]
  - LOW TURNOVER OSTEOPATHY [None]
  - MORTON'S NEUROMA [None]
  - LUMBAR RADICULOPATHY [None]
  - MUSCLE SPASMS [None]
  - SPINAL OSTEOARTHRITIS [None]
  - SEASONAL ALLERGY [None]
  - GINGIVAL SWELLING [None]
  - FEMUR FRACTURE [None]
  - ADJUSTMENT DISORDER [None]
  - ANXIETY [None]
  - DEPRESSION [None]
  - OSTEOPOROSIS [None]
  - INTERVERTEBRAL DISC PROTRUSION [None]
  - DENTAL CARIES [None]
